FAERS Safety Report 8165086-X (Version None)
Quarter: 2012Q1

REPORT INFORMATION
  Report Type: 
  Country: None (occurrence: None)
  Receive Date: 20120227
  Receipt Date: 20120214
  Transmission Date: 20120608
  Serious: Yes (Death, Hospitalization)
  Sender: FDA-Public Use
  Company Number: JP-AMGEN-JPNSP2012006098

PATIENT
  Age: 76 Year
  Sex: Female
  Weight: 53 kg

DRUGS (5)
  1. CALCIUM LACTATE [Concomitant]
     Indication: OSTEOPOROSIS
     Dosage: 1.5 G, 2X/DAY
     Route: 048
     Dates: start: 20070417, end: 20090201
  2. ENBREL [Suspect]
     Dosage: 25 MG, WEEKLY
     Route: 058
     Dates: start: 20061006, end: 20061207
  3. PREDNISOLONE [Concomitant]
     Indication: RHEUMATOID ARTHRITIS
     Dosage: 2.5 MG, 1X/DAY
     Route: 048
     Dates: start: 20051011, end: 20090201
  4. ALENDRONATE SODIUM [Concomitant]
     Indication: OSTEOPOROSIS
     Dosage: 1 TABLET, 1X/DAY
     Dates: start: 20070417, end: 20090201
  5. ENBREL [Suspect]
     Indication: RHEUMATOID ARTHRITIS
     Dosage: 25 MG, 2X/WEEK
     Route: 058
     Dates: start: 20061208, end: 20090220

REACTIONS (3)
  - CARDIAC FAILURE [None]
  - HYPOXIA [None]
  - PNEUMONIA [None]
